FAERS Safety Report 6104580-X (Version None)
Quarter: 2009Q1

REPORT INFORMATION
  Report Type: 
  Country: None (occurrence: None)
  Receive Date: 20090304
  Receipt Date: 20090219
  Transmission Date: 20090719
  Serious: Yes (Death)
  Sender: FDA-Public Use
  Company Number: B0561631A

PATIENT

DRUGS (6)
  1. BUSULFAN (FORMULATION UNKNOWN) (GENERIC) (BUSULFAN) [Suspect]
     Indication: NON-HODGKIN'S LYMPHOMA
  2. CYCLOPHOSPHAMIDE [Suspect]
     Indication: NON-HODGKIN'S LYMPHOMA
     Dosage: INTRAVENOUS INFUSION
     Route: 042
  3. FILGRASTIM [Concomitant]
  4. HYDRATION THERAPY [Concomitant]
  5. MESNA [Concomitant]
  6. PHENYTOIN [Concomitant]

REACTIONS (3)
  - DIFFUSE ALVEOLAR DAMAGE [None]
  - INTERSTITIAL LUNG DISEASE [None]
  - PNEUMONITIS [None]
